FAERS Safety Report 7810224-9 (Version None)
Quarter: 2011Q4

REPORT INFORMATION
  Report Type: 
  Country: None (occurrence: None)
  Receive Date: 20111012
  Receipt Date: 20111006
  Transmission Date: 20120403
  Serious: Yes (Hospitalization)
  Sender: FDA-Public Use
  Company Number: US-AMGEN-USACT2011045474

PATIENT
  Age: 63 Year
  Sex: Female
  Weight: 98.3 kg

DRUGS (11)
  1. MINOCYCLINE HCL [Concomitant]
     Dosage: 100 MG, QD
     Route: 048
     Dates: start: 20110805, end: 20110901
  2. CISPLATIN [Concomitant]
     Indication: HEAD AND NECK CANCER
     Dosage: 2.5 MG/KG, QWK
     Route: 042
     Dates: start: 20110804, end: 20110901
  3. TYLENOL-500 [Concomitant]
     Dosage: 500 MG, PRN
     Route: 048
     Dates: start: 20110421, end: 20110901
  4. PERCOCET [Concomitant]
     Dosage: UNK UNK, PRN
     Route: 048
     Dates: start: 20110621, end: 20110901
  5. FENTANYL [Concomitant]
     Dosage: UNK MUG, UNK
     Route: 062
     Dates: start: 20110829, end: 20110901
  6. DEXAMETHASONE [Concomitant]
     Dosage: 4 MG, BID
     Route: 048
     Dates: start: 20110805, end: 20110901
  7. PANITUMUMAB [Suspect]
     Indication: HEAD AND NECK CANCER
     Dosage: 30 MG/M2, QWK
     Route: 042
     Dates: start: 20110804, end: 20110915
  8. M.V.I. [Concomitant]
     Dosage: UNK UNK, QD
     Route: 048
  9. STOOL SOFTENER [Concomitant]
     Dosage: UNK UNK, PRN
     Route: 048
     Dates: start: 20110621, end: 20110901
  10. COMPAZINE [Concomitant]
     Dosage: 10 MG, PRN
     Route: 048
     Dates: start: 20110811, end: 20110907
  11. ROXICET [Concomitant]
     Dosage: UNK UNK, Q4H
     Route: 048

REACTIONS (5)
  - NAUSEA [None]
  - FATIGUE [None]
  - MUCOSAL INFLAMMATION [None]
  - DEHYDRATION [None]
  - DYSPHAGIA [None]
